FAERS Safety Report 5879440-X (Version None)
Quarter: 2008Q3

REPORT INFORMATION
  Report Type: 
  Country: None (occurrence: None)
  Receive Date: 20080911
  Receipt Date: 20080911
  Transmission Date: 20090109
  Serious: Yes (Hospitalization)
  Sender: FDA-Public Use
  Company Number: None

PATIENT
  Sex: Female
  Weight: 77 kg

DRUGS (8)
  1. CISPLATIN [Suspect]
     Dosage: 97 MG
  2. DOXORUBICIN HYDROCHLORIDE [Suspect]
     Dosage: 87 MG
  3. TAXOL [Suspect]
     Dosage: 310 MG
  4. CATAPRES-TTS-1 [Concomitant]
  5. LOVENOX [Concomitant]
  6. MIRALAX [Concomitant]
  7. NITROGLYCERIN [Concomitant]
  8. METOPROLOL TARTRATE [Concomitant]

REACTIONS (3)
  - OEDEMA PERIPHERAL [None]
  - PLEURAL EFFUSION [None]
  - URINARY TRACT INFECTION [None]
